FAERS Safety Report 6305827-7 (Version None)
Quarter: 2009Q3

REPORT INFORMATION
  Report Type: 
  Country: None (occurrence: None)
  Receive Date: 20090812
  Receipt Date: 20090730
  Transmission Date: 20100115
  Serious: Yes (Other)
  Sender: FDA-Public Use
  Company Number: US-JNJFOC-20090710004

PATIENT
  Sex: Female
  Weight: 99.34 kg

DRUGS (27)
  1. REMICADE [Suspect]
     Route: 042
  2. REMICADE [Suspect]
     Indication: ANKYLOSING SPONDYLITIS
     Dosage: 29 INFUSIONS
     Route: 042
  3. REMICADE [Suspect]
     Indication: RHEUMATOID ARTHRITIS
     Route: 042
  4. DHEA [Concomitant]
  5. ALPRAZOLAM [Concomitant]
     Indication: ANXIETY
     Route: 048
  6. BUTALBITAL W/ ASPIRIN + CAFFEINE [Concomitant]
     Indication: HEADACHE
     Route: 048
  7. CALCIUM [Concomitant]
     Route: 048
  8. CHANTIX [Concomitant]
  9. BENADRYL [Concomitant]
  10. LIDOCAINE [Concomitant]
     Indication: STOMATITIS
  11. MAALOX [Concomitant]
  12. EVOXAC [Concomitant]
     Route: 048
  13. FEXOFENADINE HCL [Concomitant]
     Route: 048
  14. FROVA [Concomitant]
     Indication: HEADACHE
     Route: 048
  15. GLYCOLAX [Concomitant]
  16. KADIAN [Concomitant]
     Route: 048
  17. MORPHINE SULFATE [Concomitant]
     Indication: PAIN
     Route: 048
  18. NEXIUM [Concomitant]
     Route: 048
  19. ONDANSETRON HCL [Concomitant]
     Indication: NAUSEA
     Route: 048
  20. PLAQUENIL [Concomitant]
     Route: 048
  21. PREDNISONE [Concomitant]
     Dosage: 1-6 TABLETS DAILY
     Route: 048
  22. RELPAX [Concomitant]
     Indication: MIGRAINE
     Route: 048
  23. RESTASIS [Concomitant]
     Route: 047
  24. SAVELLA [Concomitant]
     Route: 048
  25. TIZANIDINE HCL [Concomitant]
     Indication: MYALGIA
     Route: 048
  26. TRIAMTERENE AND HYDROCHLOROTHIAZIDE [Concomitant]
     Indication: SWELLING
     Route: 048
  27. VITAMIN D [Concomitant]
     Route: 048

REACTIONS (16)
  - ANXIETY [None]
  - ARTHRITIS [None]
  - CHEST PAIN [None]
  - COLD SWEAT [None]
  - DEPRESSION [None]
  - DRUG INEFFECTIVE [None]
  - DYSPNOEA EXERTIONAL [None]
  - HEADACHE [None]
  - HISTOPLASMOSIS [None]
  - HYPERHIDROSIS [None]
  - LYMPHADENOPATHY [None]
  - NAUSEA [None]
  - PYREXIA [None]
  - RASH [None]
  - STOMATITIS [None]
  - URINARY TRACT INFECTION [None]
